FAERS Safety Report 24294208 (Version 1)
Quarter: 2024Q3

REPORT INFORMATION
  Report Type: Spontaneous
  Country: US (occurrence: US)
  Receive Date: 20240906
  Receipt Date: 20240906
  Transmission Date: 20241016
  Serious: No
  Sender: DOMPE FARMACEUTICI
  Company Number: US-FARMAPROD-202405-2042

PATIENT
  Sex: Female

DRUGS (18)
  1. OXERVATE [Suspect]
     Active Substance: CENEGERMIN-BKBJ
     Indication: Neurotrophic keratopathy
     Route: 047
     Dates: start: 20240520
  2. OXERVATE [Suspect]
     Active Substance: CENEGERMIN-BKBJ
  3. ARMOUR THYROID [Concomitant]
     Active Substance: THYROID, PORCINE
  4. ARTIFICIAL TEARS [Concomitant]
  5. REFRESH CELLUVISC [Concomitant]
     Active Substance: CARBOXYMETHYLCELLULOSE SODIUM
     Dosage: DROPER GEL
  6. ZINC-220 [Concomitant]
     Dosage: 50(220)MG
  7. BIOTIN [Concomitant]
     Active Substance: BIOTIN
  8. MAGNESIUM [Concomitant]
     Active Substance: MAGNESIUM
  9. FLAXSEED [Concomitant]
     Active Substance: FLAX SEED
     Dosage: 1300-670MG
  10. CALCIUM [Concomitant]
     Active Substance: CALCIUM
     Dosage: 500(1250)
  11. VITAMIN C [Concomitant]
     Active Substance: ASCORBIC ACID
  12. TYRVAYA [Concomitant]
     Active Substance: VARENICLINE TARTRATE
     Dosage: 0.03/SPRAY
  13. VITAMIN D3 [Concomitant]
     Active Substance: CHOLECALCIFEROL
  14. MIEBO [Concomitant]
     Active Substance: PERFLUOROHEXYLOCTANE
  15. MELOXICAM [Concomitant]
     Active Substance: MELOXICAM
  16. ESTRACE [Concomitant]
     Active Substance: ESTRADIOL
     Dosage: CREAM WITH APPLICATOR
  17. ALPRAZOLAM [Concomitant]
     Active Substance: ALPRAZOLAM
  18. AMITRIPTYLINE HYDROCHLORIDE [Concomitant]
     Active Substance: AMITRIPTYLINE HYDROCHLORIDE

REACTIONS (5)
  - Eye irritation [Unknown]
  - Photophobia [Unknown]
  - Ocular discomfort [Unknown]
  - Accidental overdose [Unknown]
  - Eye pain [Unknown]
